FAERS Safety Report 14262539 (Version 1)
Quarter: 2017Q4

REPORT INFORMATION
  Report Type: Spontaneous
  Country: US (occurrence: US)
  Receive Date: 20171208
  Receipt Date: 20171208
  Transmission Date: 20180321
  Serious: Yes (Hospitalization, Other)
  Sender: FDA-Public Use
  Company Number: US-APOTEX-2017AP022606

PATIENT
  Age: 47 Year
  Sex: Male

DRUGS (1)
  1. DILTIAZEM HYDROCHLORIDE. [Suspect]
     Active Substance: DILTIAZEM HYDROCHLORIDE
     Indication: PRODUCT USED FOR UNKNOWN INDICATION
     Route: 065

REACTIONS (10)
  - Nodal rhythm [Unknown]
  - Hypotension [Unknown]
  - Suicide attempt [Unknown]
  - Hyperglycaemia [Recovering/Resolving]
  - Bradycardia [Unknown]
  - Toxicity to various agents [Unknown]
  - Chest pain [Unknown]
  - Metabolic acidosis [Recovering/Resolving]
  - Overdose [Unknown]
  - Acute respiratory distress syndrome [Recovering/Resolving]
